FAERS Safety Report 15182683 (Version 1)
Quarter: 2018Q3

REPORT INFORMATION
  Report Type: Spontaneous
  Country: GB (occurrence: GB)
  Receive Date: 20180723
  Receipt Date: 20180723
  Transmission Date: 20181010
  Serious: Yes (Other)
  Sender: FDA-Public Use
  Company Number: PHHY2018GB051127

PATIENT
  Age: 68 Year
  Sex: Female
  Weight: 61.68 kg

DRUGS (6)
  1. ATORVASTATIN [Concomitant]
     Active Substance: ATORVASTATIN
     Indication: PRODUCT USED FOR UNKNOWN INDICATION
     Dosage: UNK
     Route: 065
  2. ADCAL?D3 [Concomitant]
     Active Substance: CALCIUM CARBONATE\CHOLECALCIFEROL
     Indication: PRODUCT USED FOR UNKNOWN INDICATION
     Dosage: UNK
     Route: 065
  3. ATENOLOL. [Concomitant]
     Active Substance: ATENOLOL
     Indication: PRODUCT USED FOR UNKNOWN INDICATION
     Dosage: UNK
     Route: 065
  4. PREDNISOLONE. [Concomitant]
     Active Substance: PREDNISOLONE
     Indication: PRODUCT USED FOR UNKNOWN INDICATION
     Dosage: UNK
     Route: 065
  5. LEVOTHYROXINE. [Concomitant]
     Active Substance: LEVOTHYROXINE
     Indication: PRODUCT USED FOR UNKNOWN INDICATION
     Dosage: UNK
     Route: 065
  6. PHENOXYMETHYLPENICILLIN [Suspect]
     Active Substance: PENICILLIN V
     Indication: PHARYNGITIS
     Dosage: 2000 MG, QD (10 DAY COURSE)
     Route: 048
     Dates: start: 20180423

REACTIONS (5)
  - Haemorrhoids [Not Recovered/Not Resolved]
  - Diarrhoea [Not Recovered/Not Resolved]
  - Bladder pain [Not Recovered/Not Resolved]
  - Dysuria [Not Recovered/Not Resolved]
  - Induration [Not Recovered/Not Resolved]

NARRATIVE: CASE EVENT DATE: 20180425
